FAERS Safety Report 10195134 (Version 2)
Quarter: 2014Q3

REPORT INFORMATION
  Report Type: Spontaneous
  Country: US (occurrence: US)
  Receive Date: 20140526
  Receipt Date: 20140715
  Transmission Date: 20150326
  Serious: No
  Sender: FDA-Public Use
  Company Number: US-PFIZER INC-2014143345

PATIENT
  Age: 54 Year
  Sex: Female
  Weight: 90.7 kg

DRUGS (3)
  1. PREMPRO [Suspect]
     Active Substance: ESTROGENS, CONJUGATED\MEDROXYPROGESTERONE ACETATE
     Dosage: (0.3 MG ESTROGENS CONJUGATED/ 1.5MG MEDROXYPROGESTERONE ACETATE), DAILY
     Route: 048
     Dates: start: 201404, end: 201405
  2. PREMPRO [Suspect]
     Active Substance: ESTROGENS, CONJUGATED\MEDROXYPROGESTERONE ACETATE
     Dosage: (0.3 MG ESTROGENS CONJUGATED/ 1.5MG MEDROXYPROGESTERONE ACETATE), DAILY
     Route: 048
     Dates: start: 201405
  3. PREMPRO [Suspect]
     Active Substance: ESTROGENS, CONJUGATED\MEDROXYPROGESTERONE ACETATE
     Indication: MENOPAUSAL SYMPTOMS
     Dosage: (0.3 MG ESTROGENS CONJUGATED/ 1.5MG MEDROXYPROGESTERONE ACETATE), DAILY
     Route: 048
     Dates: end: 201404

REACTIONS (1)
  - Drug ineffective [Not Recovered/Not Resolved]

NARRATIVE: CASE EVENT DATE: 201405
